FAERS Safety Report 13791733 (Version 2)
Quarter: 2017Q3

REPORT INFORMATION
  Report Type: Report from Study
  Country: US (occurrence: US)
  Receive Date: 20170725
  Receipt Date: 20170821
  Transmission Date: 20171127
  Serious: No
  Sender: FDA-Public Use
  Company Number: US-ALLERGAN-1730558US

PATIENT
  Age: 79 Year
  Sex: Female

DRUGS (6)
  1. MEMANTINE HCL 7MG (TBD) [Suspect]
     Active Substance: MEMANTINE HYDROCHLORIDE
     Indication: DEMENTIA
     Dosage: UNK
  2. ARICEPT [Concomitant]
     Active Substance: DONEPEZIL HYDROCHLORIDE
     Indication: DEMENTIA
  3. MEMANTINE HCL 7MG (TBD) [Suspect]
     Active Substance: MEMANTINE HYDROCHLORIDE
     Indication: DEMENTIA ALZHEIMER^S TYPE
  4. MEMANTINE HCL 14MG (TBD) [Suspect]
     Active Substance: MEMANTINE HYDROCHLORIDE
     Indication: DEMENTIA
  5. ARICEPT [Concomitant]
     Active Substance: DONEPEZIL HYDROCHLORIDE
     Indication: DEMENTIA ALZHEIMER^S TYPE
     Dosage: UNK
     Route: 048
  6. MEMANTINE HCL 14MG (TBD) [Suspect]
     Active Substance: MEMANTINE HYDROCHLORIDE
     Indication: DEMENTIA ALZHEIMER^S TYPE

REACTIONS (5)
  - Inability to afford medication [None]
  - Confusional state [Not Recovered/Not Resolved]
  - Drug dose omission [Unknown]
  - Incorrect drug administration duration [None]
  - Amnesia [Not Recovered/Not Resolved]
